FAERS Safety Report 23358785 (Version 1)
Quarter: 2024Q1

REPORT INFORMATION
  Report Type: Spontaneous
  Country: US (occurrence: US)
  Receive Date: 20240102
  Receipt Date: 20240102
  Transmission Date: 20240410
  Serious: Yes (Other)
  Sender: FDA-Public Use
  Company Number: US-PFIZER INC-202300451756

PATIENT
  Age: 73 Year
  Sex: Female

DRUGS (1)
  1. BRAFTOVI [Suspect]
     Active Substance: ENCORAFENIB
     Dosage: 300 MG, 1X/DAY (BY MOUTH ONCE DAILY)
     Route: 048

REACTIONS (2)
  - Hypotension [Not Recovered/Not Resolved]
  - Dehydration [Unknown]
